FAERS Safety Report 6489651-0 (Version None)
Quarter: 2009Q4

REPORT INFORMATION
  Report Type: 
  Country: None (occurrence: None)
  Receive Date: 20091207
  Receipt Date: 20091124
  Transmission Date: 20100525
  Serious: Yes (Other)
  Sender: FDA-Public Use
  Company Number: 2009SP020337

PATIENT
  Age: 27 Year
  Sex: Female
  Weight: 86.1834 kg

DRUGS (1)
  1. NUVARING [Suspect]
     Indication: CONTRACEPTION
     Route: 067
     Dates: end: 20060701

REACTIONS (11)
  - ABDOMINAL PAIN [None]
  - BRADYCARDIA [None]
  - BRONCHITIS [None]
  - HYPOKALAEMIA [None]
  - MIGRAINE [None]
  - PAIN [None]
  - PHARYNGITIS [None]
  - PLEURAL EFFUSION [None]
  - PRESYNCOPE [None]
  - PULMONARY EMBOLISM [None]
  - PULMONARY INFARCTION [None]
